FAERS Safety Report 24654683 (Version 1)
Quarter: 2024Q4

REPORT INFORMATION
  Report Type: Spontaneous
  Country: US (occurrence: US)
  Receive Date: 20241122
  Receipt Date: 20241122
  Transmission Date: 20250115
  Serious: No
  Sender: NOVO NORDISK
  Company Number: US-NOVOPROD-1191596

PATIENT
  Age: 17 Year

DRUGS (2)
  1. FIASP [Suspect]
     Active Substance: INSULIN ASPART
     Dosage: UNK
  2. FIASP [Suspect]
     Active Substance: INSULIN ASPART
     Indication: Type 1 diabetes mellitus
     Dosage: UNK
     Route: 058

REACTIONS (7)
  - Illness [Recovered/Resolved]
  - Immunisation [Unknown]
  - Diabetes mellitus inadequate control [Unknown]
  - Blood glucose increased [Recovered/Resolved]
  - Drug ineffective [Not Recovered/Not Resolved]
  - Liquid product physical issue [Not Recovered/Not Resolved]
  - Liquid product physical issue [Not Recovered/Not Resolved]

NARRATIVE: CASE EVENT DATE: 20231130
